FAERS Safety Report 6042558-5 (Version None)
Quarter: 2009Q1

REPORT INFORMATION
  Report Type: 
  Country: None (occurrence: None)
  Receive Date: 20090119
  Receipt Date: 20090112
  Transmission Date: 20090719
  Serious: Yes (Life-Threatening, Hospitalization)
  Sender: FDA-Public Use
  Company Number: DE-RANBAXY-2009RR-20475

PATIENT
  Age: 86 Year
  Sex: Female
  Weight: 70 kg

DRUGS (17)
  1. METOPROLOL TARTRATE [Suspect]
     Indication: HYPERTENSION
     Dosage: 95 MG, QD
     Route: 048
  2. METOPROLOL TARTRATE [Suspect]
     Dosage: 47.5 MG, QD
     Dates: start: 20080521
  3. METHIZOL [Suspect]
     Indication: HYPERTHYROIDISM
     Dosage: 5 MG, QD
     Route: 048
  4. ACETYLSALICYLIC ACID SRT [Concomitant]
     Indication: CORONARY ARTERY DISEASE
     Dosage: 100 MG, QD
     Route: 048
  5. ACTRAPID PENFILL [Concomitant]
     Indication: TYPE 2 DIABETES MELLITUS
     Dosage: 6 IU, TID
     Route: 058
  6. ARLEVERT [Concomitant]
     Indication: DIZZINESS
     Dosage: 1 DF, TID
     Route: 048
  7. CALCIUM D3 STADA [Concomitant]
     Indication: OSTEOPOROSIS
     Dosage: 1 DF, BID
     Route: 048
  8. FENTANYL [Concomitant]
     Indication: MUSCULOSKELETAL PAIN
     Dosage: 12 UG, QD
     Route: 062
  9. LACTULOSE [Concomitant]
     Indication: CONSTIPATION
     Route: 048
  10. NOVALGIN/SCH [Concomitant]
     Indication: MUSCULOSKELETAL PAIN
     Dosage: 750 MG, TID
     Route: 048
  11. PANTOZOL [Concomitant]
     Indication: PROPHYLAXIS AGAINST GASTROINTESTINAL ULCER
     Dosage: 40 MG, QD
     Route: 048
  12. PIRACETAM [Concomitant]
     Indication: DEMENTIA
     Dosage: 1200 MG, BID
     Route: 048
  13. PIRETANIDE [Concomitant]
     Indication: HYPERTENSION
     Dosage: 6 MG, BID
     Route: 048
  14. PRAVASTATIN [Concomitant]
     Indication: CORONARY ARTERY DISEASE
     Dosage: 20 MG, QD
     Route: 048
  15. PROTAPHAN PENFILL [Concomitant]
     Indication: TYPE 2 DIABETES MELLITUS
     Dosage: 6 IU, QD
     Route: 058
  16. RAMIPRIL [Concomitant]
     Indication: HYPERTENSION
     Dosage: 10 MG, BID
     Route: 048
  17. TORSEMIDE [Concomitant]
     Indication: RENAL IMPAIRMENT
     Dosage: 10 MG, QD
     Route: 048

REACTIONS (2)
  - BRADYCARDIA [None]
  - HYPOTHYROIDISM [None]
